FAERS Safety Report 4907587-0 (Version None)
Quarter: 2006Q1

REPORT INFORMATION
  Report Type: 
  Country: None (occurrence: None)
  Receive Date: 20060210
  Receipt Date: 20060201
  Transmission Date: 20060701
  Serious: Yes (Hospitalization, Other)
  Sender: FDA-Public Use
  Company Number: US-MERCK-0602USA00602

PATIENT
  Age: 57 Year
  Sex: Male
  Weight: 123 kg

DRUGS (4)
  1. VIOXX [Suspect]
     Indication: ARTHRALGIA
     Route: 048
     Dates: start: 20010403, end: 20021201
  2. VIOXX [Suspect]
     Route: 048
     Dates: start: 20010403, end: 20021201
  3. LOPRESSOR [Concomitant]
     Route: 065
  4. LIPITOR [Concomitant]
     Route: 065

REACTIONS (12)
  - ADJUSTMENT DISORDER WITH DEPRESSED MOOD [None]
  - ARTHRALGIA [None]
  - BENIGN COLONIC NEOPLASM [None]
  - CHEST PAIN [None]
  - CORONARY ARTERY DISEASE [None]
  - MYOCARDIAL INFARCTION [None]
  - NEPHROLITHIASIS [None]
  - OBESITY [None]
  - OSTEOARTHRITIS [None]
  - SLEEP APNOEA SYNDROME [None]
  - VARICOSE VEIN [None]
  - VERTIGO [None]
